FAERS Safety Report 6994479-9 (Version None)
Quarter: 2010Q3

REPORT INFORMATION
  Report Type: 
  Country: None (occurrence: None)
  Receive Date: 20100917
  Receipt Date: 20100908
  Transmission Date: 20110219
  Serious: Yes (Other)
  Sender: FDA-Public Use
  Company Number: JP-JNJFOC-20100901419

PATIENT
  Age: 70 Year
  Sex: Male

DRUGS (3)
  1. DUROTEP MT [Suspect]
     Indication: CANCER PAIN
     Route: 062
  2. VOLTAREN [Concomitant]
     Dosage: (DICLOFENAC SODIUM) IN THE MORNING AND EVENING
     Route: 054
  3. STRONTIUM CHLORIDE SR-89 [Concomitant]
     Dosage: METASTRON
     Route: 065

REACTIONS (1)
  - SHOCK [None]
